FAERS Safety Report 8362596-7 (Version None)
Quarter: 2012Q2

REPORT INFORMATION
  Report Type: 
  Country: None (occurrence: None)
  Receive Date: 20120516
  Receipt Date: 20120510
  Transmission Date: 20120825
  Serious: Yes (Disabling, Other)
  Sender: FDA-Public Use
  Company Number: US-PFIZER INC-2012027877

PATIENT
  Sex: Male

DRUGS (7)
  1. CHANTIX [Suspect]
     Indication: SMOKING CESSATION THERAPY
     Dosage: UNK
     Dates: start: 20090410, end: 20090629
  2. BUPROPION [Concomitant]
     Indication: DEPRESSION
     Dosage: UNK
     Dates: start: 20000101
  3. BUPROPION [Concomitant]
     Indication: ANXIETY
  4. CLONAZEPAM [Concomitant]
     Indication: DEPRESSION
     Dosage: UNK
     Dates: start: 20040101
  5. CLONAZEPAM [Concomitant]
     Indication: ANXIETY
  6. AMITRIPTYLINE [Concomitant]
     Indication: MIGRAINE
     Dosage: UNK
     Dates: start: 20050101, end: 20100101
  7. ZOMIG [Concomitant]
     Indication: MIGRAINE
     Dosage: UNK
     Dates: start: 20070101, end: 20100101

REACTIONS (8)
  - DEPRESSION [None]
  - CONVULSION [None]
  - AGGRESSION [None]
  - SUICIDAL BEHAVIOUR [None]
  - ABNORMAL DREAMS [None]
  - ANXIETY [None]
  - LOSS OF CONSCIOUSNESS [None]
  - SUICIDAL IDEATION [None]
